FAERS Safety Report 12245520 (Version 1)
Quarter: 2016Q2

REPORT INFORMATION
  Report Type: Spontaneous
  Country: US (occurrence: None)
  Receive Date: 20160406
  Receipt Date: 20160406
  Transmission Date: 20160815
  Serious: Yes (Hospitalization)
  Sender: FDA-Public Use
  Company Number: None

PATIENT
  Age: 69 Year
  Sex: Female

DRUGS (26)
  1. LETAIRIS [Concomitant]
     Active Substance: AMBRISENTAN
  2. VOLTAREN [Concomitant]
     Active Substance: DICLOFENAC SODIUM
  3. LACTULOSE. [Concomitant]
     Active Substance: LACTULOSE
  4. FONDAPARINUX [Concomitant]
     Active Substance: FONDAPARINUX
  5. DIGOX [Concomitant]
     Active Substance: DIGOXIN
  6. IPRATROPIUM [Concomitant]
     Active Substance: IPRATROPIUM
  7. CEPHALEXIN. [Concomitant]
     Active Substance: CEPHALEXIN
  8. BUDESONIDE. [Concomitant]
     Active Substance: BUDESONIDE
  9. MUPIROCIN. [Concomitant]
     Active Substance: MUPIROCIN
  10. FERROUS SULFATE. [Concomitant]
     Active Substance: FERROUS SULFATE
  11. SMZ-TMP [Concomitant]
     Active Substance: SULFAMETHOXAZOLE\TRIMETHOPRIM
  12. AMOX/K CLAV [Concomitant]
     Active Substance: AMOXICILLIN\CLAVULANATE POTASSIUM
  13. LINZESS [Concomitant]
     Active Substance: LINACLOTIDE
  14. OMEPRAZOLE. [Concomitant]
     Active Substance: OMEPRAZOLE
  15. DICYCLOMINE [Concomitant]
     Active Substance: DICYCLOMINE HYDROCHLORIDE
  16. IBUPROFEN. [Concomitant]
     Active Substance: IBUPROFEN
  17. VIOS [Concomitant]
  18. XIFAXAN [Concomitant]
     Active Substance: RIFAXIMIN
  19. ADCIRCA [Suspect]
     Active Substance: TADALAFIL
     Indication: PULMONARY ARTERIAL HYPERTENSION
     Route: 048
     Dates: start: 20130216
  20. METOPROLOL. [Concomitant]
     Active Substance: METOPROLOL
  21. BALANC B-100 [Concomitant]
  22. POLYETH GLYCOL [Concomitant]
  23. TRAMADOL. [Concomitant]
     Active Substance: TRAMADOL
  24. METHYLPRED [Concomitant]
     Active Substance: METHYLPREDNISOLONE
  25. FLUTICASONE [Concomitant]
     Active Substance: FLUTICASONE\FLUTICASONE PROPIONATE
  26. PREDNISONE. [Concomitant]
     Active Substance: PREDNISONE

REACTIONS (1)
  - Pulmonary thrombosis [None]

NARRATIVE: CASE EVENT DATE: 201604
